FAERS Safety Report 9958744 (Version 1)
Quarter: 2014Q1

REPORT INFORMATION
  Report Type: Spontaneous
  Country: US (occurrence: US)
  Receive Date: 20140305
  Receipt Date: 20140305
  Transmission Date: 20141002
  Serious: No
  Sender: FDA-Public Use
  Company Number: US-ABBVIE-13P-163-1103326-00

PATIENT
  Sex: Male
  Weight: 192.95 kg

DRUGS (5)
  1. HUMIRA [Suspect]
     Indication: PSORIASIS
     Dates: start: 2012, end: 2012
  2. LISINOPRIL [Concomitant]
     Indication: BLOOD PRESSURE
  3. OXYCODONE [Concomitant]
     Indication: PAIN
  4. ADDERALL [Concomitant]
     Indication: ATTENTION DEFICIT/HYPERACTIVITY DISORDER
  5. VICTOZA [Concomitant]
     Indication: BLOOD GLUCOSE INCREASED

REACTIONS (2)
  - Furuncle [Recovering/Resolving]
  - Psoriasis [Not Recovered/Not Resolved]
